FAERS Safety Report 7328646-1 (Version None)
Quarter: 2011Q1

REPORT INFORMATION
  Report Type: 
  Country: None (occurrence: None)
  Receive Date: 20110303
  Receipt Date: 20110301
  Transmission Date: 20110831
  Serious: Yes (Life-Threatening, Hospitalization)
  Sender: FDA-Public Use
  Company Number: US-PFIZER INC-2011045056

PATIENT
  Sex: Female
  Weight: 63.492 kg

DRUGS (6)
  1. LOPID [Concomitant]
     Dosage: UNK
  2. LEVOTHYROXINE [Concomitant]
     Indication: HYPERSENSITIVITY
     Dosage: 75 MG, UNK
  3. GLYBURIDE [Concomitant]
     Dosage: UNK
  4. ACCUPRIL [Suspect]
     Indication: BLOOD PRESSURE ABNORMAL
  5. METFORMIN [Concomitant]
     Dosage: 1000 MG, UNK
  6. TRAMADOL [Concomitant]
     Dosage: UNK

REACTIONS (1)
  - PHARYNGEAL OEDEMA [None]
